FAERS Safety Report 9030587 (Version 2)
Quarter: 2013Q3

REPORT INFORMATION
  Report Type: Spontaneous
  Country: IT (occurrence: IT)
  Receive Date: 20130123
  Receipt Date: 20130712
  Transmission Date: 20140515
  Serious: Yes (Death, Hospitalization)
  Sender: FDA-Public Use
  Company Number: IT-ELI_LILLY_AND_COMPANY-IT201301007023

PATIENT
  Age: 70 Year
  Sex: Male

DRUGS (3)
  1. ALIMTA [Suspect]
     Indication: LUNG ADENOCARCINOMA
     Dosage: 1000 MG, QD
     Route: 042
     Dates: start: 20130110, end: 20130110
  2. CISPLATINO [Concomitant]
     Dosage: 60 MG, UNK
     Route: 042
     Dates: start: 20130103, end: 20130110
  3. CLEXANE [Concomitant]
     Dosage: 6000 IU, UNK
     Route: 058

REACTIONS (1)
  - Ischaemic stroke [Fatal]
